FAERS Safety Report 24251441 (Version 1)
Quarter: 2024Q3

REPORT INFORMATION
  Report Type: Report from Study
  Country: CA (occurrence: CA)
  Receive Date: 20240826
  Receipt Date: 20240826
  Transmission Date: 20241016
  Serious: Yes (Other)
  Sender: ABBVIE
  Company Number: CA-ABBVIE-5891128

PATIENT
  Sex: Male

DRUGS (1)
  1. RINVOQ [Suspect]
     Active Substance: UPADACITINIB
     Indication: Rheumatoid arthritis
     Dosage: FORM STRENGTH: 15MG
     Route: 048
     Dates: start: 20240411

REACTIONS (4)
  - Malignant melanoma [Unknown]
  - Post procedural infection [Unknown]
  - Scar [Unknown]
  - Incision site erythema [Unknown]

NARRATIVE: CASE EVENT DATE: 20240101
